FAERS Safety Report 7927185 (Version 3)
Quarter: 2016Q3

REPORT INFORMATION
  Report Type: Spontaneous
  Country: US (occurrence: US)
  Receive Date: 20110502
  Receipt Date: 20160919
  Transmission Date: 20161109
  Serious: No
  Sender: FDA-Public Use
  Company Number: US-ASTRAZENECA-2010SE21528

PATIENT
  Age: 27107 Day
  Sex: Female
  Weight: 72.6 kg

DRUGS (8)
  1. NEXIUM [Suspect]
     Active Substance: ESOMEPRAZOLE MAGNESIUM
     Indication: GASTROOESOPHAGEAL REFLUX DISEASE
     Route: 048
     Dates: start: 2002, end: 20160705
  2. CLARITIN OTC [Concomitant]
     Indication: SEASONAL ALLERGY
     Route: 048
  3. NEXIUM [Suspect]
     Active Substance: ESOMEPRAZOLE MAGNESIUM
     Indication: GASTROOESOPHAGEAL REFLUX DISEASE
     Route: 048
  4. NEXIUM [Suspect]
     Active Substance: ESOMEPRAZOLE MAGNESIUM
     Indication: GASTROOESOPHAGEAL REFLUX DISEASE
     Route: 048
  5. NEXIUM [Suspect]
     Active Substance: ESOMEPRAZOLE MAGNESIUM
     Indication: GASTROOESOPHAGEAL REFLUX DISEASE
     Route: 048
  6. NEXIUM [Suspect]
     Active Substance: ESOMEPRAZOLE MAGNESIUM
     Indication: GASTROOESOPHAGEAL REFLUX DISEASE
     Route: 048
     Dates: start: 2002, end: 20160705
  7. CLARITIN OTC [Concomitant]
     Indication: SEASONAL ALLERGY
     Route: 048
  8. NEXIUM [Suspect]
     Active Substance: ESOMEPRAZOLE MAGNESIUM
     Indication: GASTROOESOPHAGEAL REFLUX DISEASE
     Route: 048

REACTIONS (17)
  - Knuckle pads [Unknown]
  - Arthralgia [Unknown]
  - Oedema peripheral [Unknown]
  - Gastrooesophageal reflux disease [Unknown]
  - Joint swelling [Unknown]
  - Diarrhoea [Unknown]
  - Abdominal discomfort [Unknown]
  - Fall [Unknown]
  - Swelling [Unknown]
  - Arthritis [Unknown]
  - Malaise [Unknown]
  - Local swelling [Unknown]
  - Intentional product misuse [Unknown]
  - Pain in extremity [Unknown]
  - Neck pain [Unknown]
  - Peripheral swelling [Unknown]
  - Incorrect dose administered [Unknown]

NARRATIVE: CASE EVENT DATE: 20131007
